FAERS Safety Report 10770489 (Version 2)
Quarter: 2015Q1

REPORT INFORMATION
  Report Type: Spontaneous
  Country: US (occurrence: US)
  Receive Date: 20150206
  Receipt Date: 20150209
  Transmission Date: 20150721
  Serious: No
  Sender: FDA-Public Use
  Company Number: US-009507513-1502USA002639

PATIENT
  Age: 21 Year
  Sex: Female
  Weight: 87.53 kg

DRUGS (1)
  1. NEXPLANON [Suspect]
     Active Substance: ETONOGESTREL
     Indication: CONTRACEPTION
     Dosage: 1 ROD/ONCE EVERY THREE YEARS
     Route: 059
     Dates: end: 20150130

REACTIONS (5)
  - Implant site erythema [Recovered/Resolved]
  - Implant site pruritus [Recovered/Resolved]
  - Vaginal haemorrhage [Recovered/Resolved]
  - Device breakage [Recovered/Resolved]
  - Product quality issue [Unknown]
